FAERS Safety Report 8056044 (Version 4)
Quarter: 2013Q2

REPORT INFORMATION
  Report Type: Report from Study
  Country: US (occurrence: US)
  Receive Date: 20110727
  Receipt Date: 20130502
  Transmission Date: 20140414
  Serious: Yes (Hospitalization)
  Sender: FDA-Public Use
  Company Number: US-JNJFOC-20110707085

PATIENT
  Age: 17 Year
  Sex: Male
  Weight: 50.3 kg

DRUGS (4)
  1. INFLIXIMAB, RECOMBINANT [Suspect]
     Indication: INFLAMMATORY BOWEL DISEASE
     Route: 042
     Dates: start: 20060101, end: 20110714
  2. METHOTREXATE [Concomitant]
     Route: 065
  3. ANTIBIOTICS [Concomitant]
     Indication: INFLAMMATORY BOWEL DISEASE
     Route: 065
  4. PREDNISONE [Concomitant]
     Route: 065

REACTIONS (2)
  - Cryptosporidiosis infection [Recovered/Resolved]
  - Drug ineffective [Unknown]
